FAERS Safety Report 18893341 (Version 1)
Quarter: 2021Q1

REPORT INFORMATION
  Report Type: Spontaneous
  Country: US (occurrence: US)
  Receive Date: 20210215
  Receipt Date: 20210215
  Transmission Date: 20210420
  Serious: Yes (Other)
  Sender: FDA-Public Use
  Company Number: US-HIKMA PHARMACEUTICALS USA INC.-US-H14001-21-00734

PATIENT
  Age: 30 Year
  Sex: Male

DRUGS (1)
  1. METHAMPHETAMINE [Suspect]
     Active Substance: METHAMPHETAMINE
     Indication: SUICIDE ATTEMPT
     Dosage: UNKNOWN
     Route: 065

REACTIONS (2)
  - Catatonia [Unknown]
  - Drug abuse [Unknown]
